FAERS Safety Report 14216001 (Version 3)
Quarter: 2018Q4

REPORT INFORMATION
  Report Type: Spontaneous
  Country: US (occurrence: US)
  Receive Date: 20171122
  Receipt Date: 20181108
  Transmission Date: 20190204
  Serious: No
  Sender: FDA-Public Use
  Company Number: US-PFIZER INC-2017503951

PATIENT
  Age: 56 Year
  Sex: Female

DRUGS (1)
  1. XELJANZ XR [Suspect]
     Active Substance: TOFACITINIB CITRATE
     Indication: RHEUMATOID ARTHRITIS
     Dosage: 11 MG, ONE TIME A DAY
     Route: 048
     Dates: start: 201710

REACTIONS (5)
  - Pain [Unknown]
  - Paranasal sinus hypersecretion [Unknown]
  - Dry mouth [Unknown]
  - Sinus congestion [Unknown]
  - Myalgia [Unknown]
